FAERS Safety Report 5247671-8 (Version None)
Quarter: 2007Q1

REPORT INFORMATION
  Report Type: 
  Country: None (occurrence: None)
  Receive Date: 20070222
  Receipt Date: 20070205
  Transmission Date: 20070707
  Serious: Yes (Other)
  Sender: FDA-Public Use
  Company Number: 2007RL000039

PATIENT
  Age: 65 Year
  Sex: Female

DRUGS (6)
  1. OMACOR [Suspect]
     Indication: HYPERTRIGLYCERIDAEMIA
     Dosage: PO
     Route: 048
  2. DIAMICRON MR [Concomitant]
  3. LISINOPRIL /00894002/ [Concomitant]
  4. AMITRIPTYLINE HCL [Concomitant]
  5. GLUCOPHAGE [Concomitant]
  6. CAPRIN [Concomitant]

REACTIONS (1)
  - HYPOGLYCAEMIA [None]
